FAERS Safety Report 15498763 (Version 1)
Quarter: 2018Q4

REPORT INFORMATION
  Report Type: Spontaneous
  Country: IN (occurrence: IN)
  Receive Date: 20181015
  Receipt Date: 20181015
  Transmission Date: 20190205
  Serious: Yes (Other)
  Sender: FDA-Public Use
  Company Number: IN-LUPIN PHARMACEUTICALS INC.-2018-06971

PATIENT
  Age: 44 Year
  Sex: Male

DRUGS (3)
  1. HOMATROPINE [Concomitant]
     Active Substance: HOMATROPINE\HOMATROPINE HYDROBROMIDE
     Indication: KERATITIS FUNGAL
     Dosage: UNK UNK, QID
     Route: 065
  2. NATAMYCIN [Concomitant]
     Active Substance: NATAMYCIN
     Indication: KERATITIS FUNGAL
     Dosage: 5 %, UNK (HOURLY)
     Route: 065
  3. VORICONAZOLE. [Suspect]
     Active Substance: VORICONAZOLE
     Indication: KERATITIS FUNGAL
     Dosage: 1 %, UNK
     Route: 061

REACTIONS (1)
  - Dermatitis contact [Recovering/Resolving]
